FAERS Safety Report 8133563-3 (Version None)
Quarter: 2012Q1

REPORT INFORMATION
  Report Type: 
  Country: None (occurrence: None)
  Receive Date: 20120213
  Receipt Date: 20120209
  Transmission Date: 20120608
  Serious: No
  Sender: FDA-Public Use
  Company Number: US-BAYER-2012-014158

PATIENT
  Age: 47 Year
  Sex: Male
  Weight: 75 kg

DRUGS (4)
  1. ATENOLOL [Concomitant]
  2. ALEVE (CAPLET) [Suspect]
     Dosage: 2 U, UNK
     Route: 048
     Dates: start: 20120209, end: 20120209
  3. MULTI-VITAMIN [Concomitant]
  4. LISINOPRIL [Concomitant]

REACTIONS (1)
  - NO ADVERSE EVENT [None]
